FAERS Safety Report 8778213 (Version 1)
Quarter: 2012Q4

REPORT INFORMATION
  Report Type: 
  Country: DE (occurrence: DE)
  Receive Date: 20120912
  Receipt Date: 20120912
  Transmission Date: 20130627
  Serious: Yes (Hospitalization)
  Sender: FDA-Public Use
  Company Number: DE-AMGEN-DEUSP2012056541

PATIENT
  Sex: Female

DRUGS (7)
  1. NEULASTA [Suspect]
     Indication: B-CELL LYMPHOMA
     Dosage: 6 mg, qd
     Route: 058
     Dates: start: 20120708, end: 20120708
  2. RITUXIMAB [Suspect]
     Indication: B-CELL LYMPHOMA
     Dosage: 700 mg, qd
     Route: 042
     Dates: start: 20120704, end: 20120704
  3. CYCLOPHOSPHAMIDE [Suspect]
     Indication: B-CELL LYMPHOMA
     Dosage: 1433 mg, qd
     Route: 042
     Dates: start: 20120705, end: 20120705
  4. DOXORUBICINE /00330901/ [Suspect]
     Indication: B-CELL LYMPHOMA
     Dosage: 96 mg, qd
     Route: 042
     Dates: start: 20120705, end: 20120705
  5. VINCRISTINE [Suspect]
     Indication: B-CELL LYMPHOMA
     Dosage: 3.8 mg, qd
     Route: 042
     Dates: start: 20120705, end: 20120705
  6. PREDNISOLONE [Suspect]
     Indication: B-CELL LYMPHOMA
     Dosage: 100 mg, UNK
     Route: 048
     Dates: start: 20120705, end: 20120709
  7. CANDESARTAN CILEXETIL [Concomitant]
     Indication: HYPERTENSION

REACTIONS (2)
  - Neutropenic colitis [Recovered/Resolved with Sequelae]
  - Clostridial infection [None]
